FAERS Safety Report 8407554 (Version 2)
Quarter: 2013Q2

REPORT INFORMATION
  Report Type: Spontaneous
  Country: US (occurrence: None)
  Receive Date: 20111227
  Receipt Date: 20120426
  Transmission Date: 20140414
  Serious: No
  Sender: FDA-Public Use
  Company Number: PHEH2011US06758

PATIENT
  Age: 60 Year
  Sex: Female
  Weight: 65.8 kg

DRUGS (6)
  1. GILENYA [Suspect]
     Indication: MULTIPLE SCLEROSIS
     Dosage: 0.5 MG, QD, ORAL
     Route: 048
     Dates: start: 20111011
  2. TYSABRI (NATALIZUMAB) [Concomitant]
  3. AVONEX (INTERFERON BETA-1A) [Concomitant]
  4. COPAXONE (GLATIRAMER ACETATE) [Concomitant]
  5. BETASERON (ALBUMIN HUMAN, GLUCOSE, NTERFERON BETA) [Concomitant]
  6. REBIF (INTERFERSON BETA-1A) [Concomitant]

REACTIONS (9)
  - INSOMNIA [None]
  - FAECES PALE [None]
  - FLUSHING [None]
  - SENSORY DISTURBANCE [None]
  - CONSTIPATION [None]
  - PARAESTHESIA [None]
  - Liver function test abnormal [None]
  - Insomnia [None]
  - Progressive multiple sclerosis [None]
